FAERS Safety Report 10235156 (Version 1)
Quarter: 2014Q1

REPORT INFORMATION
  Report Type: Spontaneous
  Country: US (occurrence: None)
  Receive Date: 20140306
  Receipt Date: 20140306
  Transmission Date: 20141002
  Serious: Yes (Other)
  Sender: FDA-Public Use
  Company Number: 163-21880-13092913

PATIENT
  Age: 64 Year
  Sex: Female
  Weight: 73.48 kg

DRUGS (11)
  1. REVLIMID (LENALIDOMIDE) (25 MILLIGRAM, CAPSULES) [Suspect]
     Indication: PLASMA CELL MYELOMA
     Route: 048
     Dates: start: 20110701
  2. LEVOTHYROXINE(LEVOTHYROXINE)(UNKNOWN) [Concomitant]
  3. PHENYTOIN(PHENYTOIN)(UNKNOWN) [Concomitant]
  4. NEURONTIN(GABAPENTIN)(UNKNOWN) [Concomitant]
  5. HYDROCODONE/APAP(VICODIN)(UNKNOWN) [Concomitant]
  6. AMLODIPINE(AMLODIPINE)(UNKNOWN) [Concomitant]
  7. LISINOPRIL(LISINOPRIL)(UNKNOWN) [Concomitant]
  8. SIMVASTATIN(SIMVASTATIN)(UNKNOWN) [Concomitant]
  9. LEXAPRO(ESCITALOPRAM OXALATE)(UNKNOWN) [Concomitant]
  10. LOMOTIL(LOMOTIL)(UNKNOWN) [Concomitant]
  11. DEXAMETHASONE(DEXAMETHASONE)(UNKNOWN) [Concomitant]

REACTIONS (1)
  - Thrombosis [None]
